FAERS Safety Report 10544142 (Version 4)
Quarter: 2015Q1

REPORT INFORMATION
  Report Type: Spontaneous
  Country: IT (occurrence: None)
  Receive Date: 20141023
  Receipt Date: 20150323
  Transmission Date: 20150720
  Serious: Yes (Hospitalization)
  Sender: FDA-Public Use
  Company Number: 2585155

PATIENT
  Age: 69 Year
  Sex: Female
  Weight: 64 kg

DRUGS (6)
  1. ONDANSETRON [Concomitant]
     Active Substance: ONDANSETRON
  2. DOCETAXEL. [Suspect]
     Active Substance: DOCETAXEL
     Indication: BREAST CANCER
     Dosage: 170 MG MILLIGRAM(S), CYCLICAL, INTRAVENOUS (NOT OTHERWISE SPECIFIED)
     Route: 042
     Dates: start: 20140908, end: 20140908
  3. DEXAMETHASONE. [Concomitant]
     Active Substance: DEXAMETHASONE
  4. RANITIDINA ANGENERICO [Concomitant]
     Active Substance: RANITIDINE HYDROCHLORIDE
  5. SIVASTIN [Concomitant]
     Active Substance: SIMVASTATIN
  6. LEVOBREN [Concomitant]
     Active Substance: LEVOSULPIRIDE

REACTIONS (8)
  - Oedema peripheral [None]
  - Diarrhoea [None]
  - Pain in extremity [None]
  - Rash [None]
  - Toxicity to various agents [None]
  - Circulatory collapse [None]
  - Product quality issue [None]
  - Rash generalised [None]

NARRATIVE: CASE EVENT DATE: 20140911
